FAERS Safety Report 20926836 (Version 1)
Quarter: 2022Q2

REPORT INFORMATION
  Report Type: Spontaneous
  Country: US (occurrence: None)
  Receive Date: 20220607
  Receipt Date: 20220607
  Transmission Date: 20220721
  Serious: Yes (Hospitalization)
  Sender: FDA-Public Use
  Company Number: None

PATIENT
  Age: 73 Year
  Sex: Female
  Weight: 59.9 kg

DRUGS (5)
  1. PAXLOVID [Suspect]
     Active Substance: NIRMATRELVIR\RITONAVIR
     Indication: COVID-19
     Dates: start: 20220525, end: 20220529
  2. clopidogrel 75 mg daily [Concomitant]
  3. prednisone oral taper [Concomitant]
     Dates: start: 20220525
  4. WARFARIN [Concomitant]
     Active Substance: WARFARIN
  5. LEVOFLOXACIN [Concomitant]
     Active Substance: LEVOFLOXACIN

REACTIONS (9)
  - Cough [None]
  - Sputum discoloured [None]
  - Purpura senile [None]
  - International normalised ratio increased [None]
  - Contusion [None]
  - Dizziness [None]
  - Fatigue [None]
  - Haemoglobin decreased [None]
  - Drug interaction [None]

NARRATIVE: CASE EVENT DATE: 20220531
